FAERS Safety Report 10704053 (Version 2)
Quarter: 2015Q2

REPORT INFORMATION
  Report Type: Spontaneous
  Country: JP (occurrence: JP)
  Receive Date: 20150112
  Receipt Date: 20150514
  Transmission Date: 20150821
  Serious: Yes (Other)
  Sender: FDA-Public Use
  Company Number: JP-ASTRAZENECA-2015SE03381

PATIENT
  Age: 28 Year
  Sex: Male

DRUGS (36)
  1. MIYA-BM [Concomitant]
     Active Substance: CLOSTRIDIUM BUTYRICUM SPORES STRAIN M-55
     Dosage: DOSE UNKNOWN (AFTER EVERY MEAL), THREE TIMES A DAY
     Route: 048
     Dates: start: 20140422
  2. BUSCOPAN [Concomitant]
     Active Substance: BUTYLSCOPOLAMINE BROMIDE
     Indication: ABDOMINAL PAIN
     Dosage: AS REQUIRED WHEN ABDOMINAL PAIN OCCURS
     Route: 048
     Dates: start: 20140422
  3. ZITHROMAC SR [Concomitant]
     Active Substance: AZITHROMYCIN DIHYDRATE
     Dosage: DOSE UNKNOWN
     Route: 048
     Dates: start: 20141030
  4. KEFRAL [Concomitant]
     Active Substance: CEFACLOR
     Dosage: DOSE UNKNOWN (AFTER EVERY MEAL), THREE TIMES A DAY
     Route: 048
     Dates: start: 20141222
  5. VICTOZA [Concomitant]
     Active Substance: LIRAGLUTIDE
     Indication: DIABETES MELLITUS
     Route: 058
     Dates: start: 20140929, end: 20141109
  6. DOMPERIDONE [Concomitant]
     Active Substance: DOMPERIDONE
     Dosage: DOSE UNKNOWN (AFTER EVERY MEAL), THREE TIMES A DAY
     Route: 048
     Dates: start: 20140107
  7. PL [Concomitant]
     Active Substance: ACETAMINOPHEN\CAFFEINE\PROMETHAZINE\SALICYLAMIDE
     Dosage: DOSE UNKNOWN (AFTER EVERY MEAL), THREE TIMES A DAY
     Route: 048
     Dates: start: 20140107
  8. SOLDEM 1 [Concomitant]
     Active Substance: DEXTROSE\SODIUM CHLORIDE\SODIUM LACTATE
     Dosage: DOSE UNKNOWN
     Route: 041
     Dates: start: 20131231
  9. FORXIGA [Suspect]
     Active Substance: DAPAGLIFLOZIN
     Indication: DIABETES MELLITUS
     Dosage: 5 MG, EVERY DAY BEFORE BREAKFAST
     Route: 048
     Dates: start: 20140825, end: 20140929
  10. METGLUCO [Suspect]
     Active Substance: METFORMIN HYDROCHLORIDE
     Indication: DIABETES MELLITUS
     Dosage: NON-AZ PRODUCT, 250 MG BID, RIGHT BEFORE BREAKFAST AND EVENING MEAL
     Route: 048
     Dates: start: 20131111, end: 20141129
  11. REBAMIPIDE [Concomitant]
     Active Substance: REBAMIPIDE
     Indication: PAIN
     Dosage: AS REQUIRED FOR PAIN
     Route: 048
     Dates: start: 20150102
  12. CEFDINIR. [Concomitant]
     Active Substance: CEFDINIR
     Dosage: DOSE UNKNOWN (AFTER EVERY MEAL), THREE TIMES A DAY
     Route: 048
     Dates: start: 20140902
  13. GLYCYRON [Concomitant]
     Active Substance: AMMONIUM GLYCYRRHIZATE\GLYCINE\METHIONINE
     Dosage: DOSE UNKNOWN (RIGHT BEFORE BREAKFAST AND EVENING MEAL), TWO TIMES A DAY
     Route: 048
     Dates: start: 20141110
  14. NEUZYM [Concomitant]
     Active Substance: LYSOZYME HYDROCHLORIDE
     Dosage: DOSE UNKNOWN (AFTER EVERY MEAL), THREE TIMES A DAY
     Route: 048
     Dates: start: 20141222
  15. BYETTA [Suspect]
     Active Substance: EXENATIDE
     Indication: DIABETES MELLITUS
     Dosage: 20 UG TWO TIMES A DAY, BEFORE BREAKFAST AND EVENING MEAL
     Route: 058
     Dates: start: 20141110, end: 20141128
  16. CRESTOR [Suspect]
     Active Substance: ROSUVASTATIN CALCIUM
     Route: 048
     Dates: start: 20141129
  17. REBAMIPIDE [Concomitant]
     Active Substance: REBAMIPIDE
     Indication: PAIN
     Dosage: DOSE UNKNOWN (AFTER EVERY MEAL), THREE TIMES A DAY
     Route: 048
     Dates: start: 20140116
  18. NASONEX [Concomitant]
     Active Substance: MOMETASONE FUROATE
     Dosage: DOSE UNKNOWN, EVERY DAY
     Route: 045
     Dates: start: 20140120
  19. COUGHCODE-N [Concomitant]
     Active Substance: ACETAMINOPHEN\BROMISOVAL\DIHYDROCODEINE PHOSPHATE\DIPHENHYDRAMINE SALICYLATE\DYPHYLLINE\METHYLEPHEDRINE HYDROCHLORIDE, (+/-)-
     Dosage: DOSE UNKNOWN (AFTER EVERY MEAL), THREE TIMES A DAY
     Route: 048
     Dates: start: 20140621
  20. TAMIFLU [Concomitant]
     Active Substance: OSELTAMIVIR PHOSPHATE
     Dosage: DOSE UNKNOWN (AFTER BREAKFAST AND EVENING MEAL), TWO TIMES A DAY
     Route: 048
     Dates: start: 20140622
  21. BYETTA [Suspect]
     Active Substance: EXENATIDE
     Indication: DIABETES MELLITUS
     Dosage: 20 UG TWO TIMES A DAY, BEFORE BREAKFAST AND EVENING MEAL
     Route: 058
     Dates: start: 20131111, end: 20140630
  22. CRESTOR [Suspect]
     Active Substance: ROSUVASTATIN CALCIUM
     Dosage: 5 MG EVERY DAY, RIGHT BEFORE EVENING MEAL
     Route: 048
     Dates: start: 20131111, end: 20131123
  23. CALONAL [Concomitant]
     Active Substance: ACETAMINOPHEN
     Indication: HEADACHE
     Dosage: AS REQUIRED WHEN HEADACHE OCCURS
     Route: 048
     Dates: start: 20140107
  24. SHOSEIRYUTO [Concomitant]
     Active Substance: EPHEDRA SINICA STEM\HERBALS
     Dosage: DOSE UNKNOWN (BEFORE EVERY MEAL), THREE TIMES A DAY
     Route: 048
     Dates: start: 20140621
  25. CALONAL [Concomitant]
     Active Substance: ACETAMINOPHEN
     Indication: HEADACHE
     Dosage: DOSE UNKNOWN (AFTER EVERY MEAL), THREE TIMES A DAY
     Route: 048
     Dates: start: 20140902
  26. THREENOFEN [Concomitant]
     Active Substance: LOXOPROFEN SODIUM
     Indication: PAIN
     Dosage: AS REQUIRED FOR PAIN
     Route: 048
     Dates: start: 20141222
  27. AZUNOL [Concomitant]
     Active Substance: SODIUM GUALENATE
     Dosage: DOSE UNKNOWN
     Route: 049
     Dates: start: 20141027
  28. BYETTA [Suspect]
     Active Substance: EXENATIDE
     Indication: DIABETES MELLITUS
     Route: 058
     Dates: start: 20141129
  29. ACTOS [Concomitant]
     Active Substance: PIOGLITAZONE HYDROCHLORIDE
     Indication: DIABETES MELLITUS
     Dosage: 15 MG RIGHT BEFORE BREAKFAST
     Route: 048
     Dates: start: 20140929
  30. THREENOFEN [Concomitant]
     Active Substance: LOXOPROFEN SODIUM
     Indication: PAIN
     Dosage: DOSE UNKNOWN (AFTER EVERY MEAL), THREE TIMES A DAY
     Route: 048
     Dates: start: 20140116
  31. AZUNOL [Concomitant]
     Active Substance: SODIUM GUALENATE
     Dosage: DOSE UNKNOWN (SEVERAL TIMES DAILY)
     Route: 049
     Dates: start: 20140621
  32. VICTOZA [Concomitant]
     Active Substance: LIRAGLUTIDE
     Indication: DIABETES MELLITUS
     Route: 058
     Dates: start: 20100826, end: 20131110
  33. VICTOZA [Concomitant]
     Active Substance: LIRAGLUTIDE
     Indication: DIABETES MELLITUS
     Route: 058
     Dates: start: 20140630, end: 20140903
  34. VICTOZA [Concomitant]
     Active Substance: LIRAGLUTIDE
     Indication: DIABETES MELLITUS
     Route: 058
     Dates: start: 20140904, end: 20140929
  35. PATANOL [Concomitant]
     Active Substance: OLOPATADINE HYDROCHLORIDE
     Dosage: DOSE UNKNOWN
     Route: 047
     Dates: start: 20140324
  36. MEDICON [Concomitant]
     Active Substance: DEXTROMETHORPHAN HYDROBROMIDE
     Dosage: DOSE UNKNOWN (AFTER EVERY MEAL), THREE TIMES A DAY
     Route: 048
     Dates: start: 20140902

REACTIONS (3)
  - Weight increased [Unknown]
  - Blood glucose increased [Recovered/Resolved]
  - Hypoglycaemia [Recovered/Resolved]

NARRATIVE: CASE EVENT DATE: 20140929
